FAERS Safety Report 8892898 (Version 1)
Quarter: 2012Q4

REPORT INFORMATION
  Report Type: 
  Country: US (occurrence: US)
  Receive Date: 20121107
  Receipt Date: 20121107
  Transmission Date: 20130627
  Serious: No
  Sender: FDA-Public Use
  Company Number: US-AMGEN-USASP2011054144

PATIENT
  Age: 31 Year
  Sex: Female

DRUGS (7)
  1. ENBREL [Suspect]
     Indication: PRODUCT USED FOR UNKNOWN INDICATION
     Dosage: 50 mg, qwk
  2. PLAQUENIL                          /00072603/ [Concomitant]
     Dosage: 200 mg, UNK
     Route: 048
  3. SYNTHROID [Concomitant]
     Dosage: 25 mug, UNK
     Route: 048
  4. NASONEX [Concomitant]
     Dosage: 50 mug, UNK
  5. NOVOLOG [Concomitant]
  6. ASPIRIN [Concomitant]
     Dosage: 81 mg, UNK
     Route: 048
  7. MULTIVITAMIN                       /00097801/ [Concomitant]
     Indication: PRODUCT USED FOR UNKNOWN INDICATION
     Route: 048

REACTIONS (1)
  - Injection site reaction [Recovered/Resolved]
